FAERS Safety Report 12244713 (Version 1)
Quarter: 2016Q2

REPORT INFORMATION
  Report Type: Spontaneous
  Country: US (occurrence: US)
  Receive Date: 20160407
  Receipt Date: 20160407
  Transmission Date: 20160815
  Serious: No
  Sender: FDA-Public Use
  Company Number: US-TEVA-648558USA

PATIENT
  Age: 58 Year
  Sex: Male
  Weight: 59.02 kg

DRUGS (2)
  1. AZILECT [Suspect]
     Active Substance: RASAGILINE MESYLATE
  2. AZILECT [Suspect]
     Active Substance: RASAGILINE MESYLATE
     Indication: PARKINSON^S DISEASE
     Dates: start: 20160307, end: 20160326

REACTIONS (4)
  - Muscle rigidity [Not Recovered/Not Resolved]
  - Anxiety [Not Recovered/Not Resolved]
  - Discomfort [Unknown]
  - Tremor [Recovered/Resolved]

NARRATIVE: CASE EVENT DATE: 20160330
